FAERS Safety Report 17327102 (Version 1)
Quarter: 2020Q1

REPORT INFORMATION
  Report Type: Spontaneous
  Country: TR (occurrence: TR)
  Receive Date: 20200127
  Receipt Date: 20200127
  Transmission Date: 20200409
  Serious: Yes (Other)
  Sender: FDA-Public Use
  Company Number: NVSC2020TR011975

PATIENT
  Age: 1 Year
  Sex: Female

DRUGS (1)
  1. PREDNISOLONE. [Suspect]
     Active Substance: PREDNISOLONE
     Indication: STEVENS-JOHNSON SYNDROME
     Dosage: 2 MG/KG, QD
     Route: 042

REACTIONS (2)
  - Product use in unapproved indication [Unknown]
  - Corneal epithelium defect [Recovered/Resolved]
